FAERS Safety Report 22793903 (Version 6)
Quarter: 2025Q1

REPORT INFORMATION
  Report Type: Report from Study
  Country: CO (occurrence: CO)
  Receive Date: 20230807
  Receipt Date: 20250221
  Transmission Date: 20250409
  Serious: Yes (Other)
  Sender: EXELIXIS
  Company Number: CO-IPSEN Group, Research and Development-2023-17524

PATIENT
  Age: 88 Year
  Sex: Female
  Weight: 65 kg

DRUGS (12)
  1. CABOMETYX [Suspect]
     Active Substance: CABOZANTINIB S-MALATE
     Indication: Renal cell carcinoma
     Dosage: 1 TABLET EVERY 24 HOURS
     Route: 048
     Dates: start: 20230413, end: 20230629
  2. CABOMETYX [Suspect]
     Active Substance: CABOZANTINIB S-MALATE
     Dosage: 1 TABLET EVERY 24 HOURS
     Route: 048
     Dates: start: 202307, end: 20231208
  3. CABOMETYX [Suspect]
     Active Substance: CABOZANTINIB S-MALATE
     Dosage: 1 TABLET EVERY 24 HOURS
     Route: 048
     Dates: end: 20240203
  4. CABOMETYX [Suspect]
     Active Substance: CABOZANTINIB S-MALATE
     Dosage: 1 TABLET EVERY 24 HOURS
     Route: 048
     Dates: end: 20240911
  5. CABOMETYX [Suspect]
     Active Substance: CABOZANTINIB S-MALATE
     Dosage: EVERY 24 HOURS
     Route: 048
  6. ESOMEPRAZOLE [Concomitant]
     Active Substance: ESOMEPRAZOLE
     Indication: Gastritis
     Dosage: 1 TABLET EVERY 24 HOURS
     Dates: start: 20230401
  7. ESOMEPRAZOLE [Concomitant]
     Active Substance: ESOMEPRAZOLE
  8. LOVASTATIN [Concomitant]
     Active Substance: LOVASTATIN
     Indication: Blood cholesterol
     Dosage: 1 TABLET EVERY 24 HOURS
     Dates: start: 20230401
  9. LOVASTATIN [Concomitant]
     Active Substance: LOVASTATIN
     Dosage: 1 TABLET EVERY 24 HOURS
  10. LOSARTAN [Concomitant]
     Active Substance: LOSARTAN
     Indication: Hypertension
     Dosage: 1 TABLET EVERY 24 HOURS, ONGOING
     Dates: start: 20230401
  11. LOSARTAN [Concomitant]
     Active Substance: LOSARTAN
  12. LEVOTHYROXINE [Concomitant]
     Active Substance: LEVOTHYROXINE
     Indication: Thyroid disorder
     Dosage: 1 TABLET EVERY 24 HOURS
     Dates: start: 20230101

REACTIONS (13)
  - Urticaria [Not Recovered/Not Resolved]
  - Spinal fracture [Not Recovered/Not Resolved]
  - Flatulence [Not Recovered/Not Resolved]
  - Abdominal pain upper [Not Recovered/Not Resolved]
  - Abdominal pain [Not Recovered/Not Resolved]
  - Diarrhoea [Not Recovered/Not Resolved]
  - Diarrhoea [Not Recovered/Not Resolved]
  - Therapy interrupted [Unknown]
  - Product supply issue [Unknown]
  - Product dose omission issue [Unknown]
  - Product supply issue [Unknown]
  - Fall [Not Recovered/Not Resolved]
  - Diarrhoea [Not Recovered/Not Resolved]

NARRATIVE: CASE EVENT DATE: 20230427
